FAERS Safety Report 24227391 (Version 1)
Quarter: 2024Q3

REPORT INFORMATION
  Report Type: Spontaneous
  Country: US (occurrence: US)
  Receive Date: 20240820
  Receipt Date: 20240820
  Transmission Date: 20241017
  Serious: No
  Sender: REGENERON
  Company Number: US-REGENERON PHARMACEUTICALS, INC.-2023-134378

PATIENT
  Sex: Female

DRUGS (2)
  1. PRALUENT [Suspect]
     Active Substance: ALIROCUMAB
     Indication: Hyperlipidaemia
     Dosage: 75 MG, Q2W
     Route: 058
     Dates: start: 20230906
  2. PRALUENT [Suspect]
     Active Substance: ALIROCUMAB
     Indication: Coronary artery disease

REACTIONS (5)
  - Injection site bruising [Unknown]
  - Rash erythematous [Not Recovered/Not Resolved]
  - Rash [Recovered/Resolved]
  - Rash pruritic [Not Recovered/Not Resolved]
  - Product delivery mechanism issue [Unknown]

NARRATIVE: CASE EVENT DATE: 20230101
